FAERS Safety Report 19845435 (Version 1)
Quarter: 2021Q3

REPORT INFORMATION
  Report Type: Report from Study
  Country: US (occurrence: US)
  Receive Date: 20210916
  Receipt Date: 20210916
  Transmission Date: 20211014
  Serious: Yes (Other)
  Sender: FDA-Public Use
  Company Number: US-BIOGEN-2021BI01048219

PATIENT
  Sex: Female

DRUGS (2)
  1. TECFIDERA [Suspect]
     Active Substance: DIMETHYL FUMARATE
     Indication: MULTIPLE SCLEROSIS
     Route: 048
     Dates: start: 20150724, end: 202108
  2. TECFIDERA [Suspect]
     Active Substance: DIMETHYL FUMARATE
     Indication: MULTIPLE SCLEROSIS
     Dosage: STARTED AROUND APRIL OR MAY 2021. TOOK IT FOR ABOUT A WEEK
     Route: 048
     Dates: start: 2021, end: 2021

REACTIONS (2)
  - Blood pressure decreased [Recovered/Resolved]
  - Blood pressure abnormal [Unknown]
